FAERS Safety Report 14448909 (Version 2)
Quarter: 2018Q1

REPORT INFORMATION
  Report Type: Spontaneous
  Country: US (occurrence: US)
  Receive Date: 20180126
  Receipt Date: 20180226
  Transmission Date: 20180509
  Serious: Yes (Life-Threatening, Other)
  Sender: FDA-Public Use
  Company Number: US-GEHC-2018CSU000330

PATIENT
  Age: 64 Year
  Sex: Female
  Weight: 51.25 kg

DRUGS (7)
  1. VITAMIN B12 [Concomitant]
     Active Substance: CYANOCOBALAMIN
     Dosage: 1000 ?G, QD
     Route: 048
     Dates: end: 20180102
  2. OMNIPAQUE [Suspect]
     Active Substance: IOHEXOL
     Indication: ABNORMAL LOSS OF WEIGHT
     Dosage: 96 ML, SINGLE
     Route: 042
     Dates: start: 20171228, end: 20171228
  3. TOPROL XL [Concomitant]
     Active Substance: METOPROLOL SUCCINATE
     Dosage: 25 MG, QD
     Route: 048
     Dates: start: 20171220
  4. DESYREL [Concomitant]
     Active Substance: TRAZODONE HYDROCHLORIDE
     Dosage: 100 MG, QD (AT NIGHT)
     Route: 048
     Dates: start: 20170515
  5. ASPIRIN                            /00002701/ [Concomitant]
     Active Substance: ASPIRIN
     Dosage: 81 MG, QD
     Route: 048
     Dates: start: 20140516
  6. CALCIUM + VITAMIN D                /01483701/ [Concomitant]
     Active Substance: CALCIUM\VITAMIN D
     Dosage: 200 UNITS, BID
     Route: 048
     Dates: start: 20171031
  7. PROZAC [Concomitant]
     Active Substance: FLUOXETINE HYDROCHLORIDE
     Dosage: 40 MG, QD
     Route: 048
     Dates: start: 20171201

REACTIONS (9)
  - Dyspnoea [Recovered/Resolved]
  - Pharyngeal oedema [Unknown]
  - Dysphagia [Unknown]
  - Odynophagia [Unknown]
  - Nausea [Unknown]
  - Chest pain [Unknown]
  - Chest discomfort [Unknown]
  - Cough [Unknown]
  - Throat irritation [Recovered/Resolved]

NARRATIVE: CASE EVENT DATE: 20171228
